FAERS Safety Report 13405219 (Version 1)
Quarter: 2017Q2

REPORT INFORMATION
  Report Type: Report from Study
  Country: DE (occurrence: DE)
  Receive Date: 20170405
  Receipt Date: 20170405
  Transmission Date: 20170830
  Serious: Yes (Hospitalization)
  Sender: FDA-Public Use
  Company Number: DE-BIOGEN-2017BI00382733

PATIENT
  Age: 40 Year
  Sex: Female
  Weight: 79.5 kg

DRUGS (2)
  1. ZINBRYTA [Suspect]
     Active Substance: DACLIZUMAB
     Indication: MULTIPLE SCLEROSIS
     Route: 058
     Dates: start: 20170321
  2. SIRALUD [Concomitant]
     Indication: MUSCLE TIGHTNESS
     Route: 065
     Dates: start: 201702

REACTIONS (1)
  - Gastrointestinal pain [Recovered/Resolved with Sequelae]

NARRATIVE: CASE EVENT DATE: 20170325
